FAERS Safety Report 15962061 (Version 1)
Quarter: 2019Q1

REPORT INFORMATION
  Report Type: Report from Study
  Country: DE (occurrence: DE)
  Receive Date: 20190214
  Receipt Date: 20190214
  Transmission Date: 20190417
  Serious: Yes (Hospitalization)
  Sender: FDA-Public Use
  Company Number: DE-ROCHE-1878140

PATIENT
  Sex: Female

DRUGS (13)
  1. PREDNISOLON [Concomitant]
     Active Substance: PREDNISOLONE
  2. COTRIM [Concomitant]
     Active Substance: SULFAMETHOXAZOLE\TRIMETHOPRIM
  3. RIXATHON [Suspect]
     Active Substance: RITUXIMAB
     Indication: RHEUMATOID ARTHRITIS
     Route: 042
  4. VIGANTOLETTEN [Concomitant]
     Active Substance: CHOLECALCIFEROL
  5. RITUXIMAB. [Suspect]
     Active Substance: RITUXIMAB
     Indication: RHEUMATOID ARTHRITIS
     Dosage: DATE OF LAST DOSE PRIOR TO SAE WAS 23/SEP/2016
     Route: 042
     Dates: end: 20170515
  6. IBUPROFEN. [Concomitant]
     Active Substance: IBUPROFEN
     Dosage: AS REQUIRED
     Route: 065
  7. ENDOXAN [Concomitant]
     Active Substance: CYCLOPHOSPHAMIDE
  8. PANTOZOL [Concomitant]
     Active Substance: PANTOPRAZOLE SODIUM
     Route: 065
  9. OXYGEN. [Concomitant]
     Active Substance: OXYGEN
     Dosage: LONG-TERM THERAPY
     Route: 065
  10. FOLIC ACID. [Concomitant]
     Active Substance: FOLIC ACID
     Route: 065
  11. COLECALCIFEROL [Concomitant]
     Active Substance: CHOLECALCIFEROL
  12. METHOTREXATE. [Suspect]
     Active Substance: METHOTREXATE
     Indication: RHEUMATOID ARTHRITIS
     Route: 065
  13. DECORTIN [Concomitant]
     Active Substance: PREDNISONE
     Route: 065

REACTIONS (2)
  - Interstitial lung disease [Unknown]
  - Interstitial lung disease [Unknown]

NARRATIVE: CASE EVENT DATE: 20161011
